FAERS Safety Report 5820116-2 (Version None)
Quarter: 2008Q3

REPORT INFORMATION
  Report Type: 
  Country: None (occurrence: None)
  Receive Date: 20080724
  Receipt Date: 20080710
  Transmission Date: 20090109
  Serious: Yes (Other)
  Sender: FDA-Public Use
  Company Number: US-BAYER-200827639NA

PATIENT
  Age: 75 Year
  Sex: Male

DRUGS (1)
  1. NEXAVAR [Suspect]
     Indication: HEPATIC NEOPLASM MALIGNANT
     Dosage: TOTAL DAILY DOSE: 800 MG  UNIT DOSE: 200 MG
     Route: 048
     Dates: start: 20080331, end: 20080401

REACTIONS (10)
  - ALOPECIA [None]
  - BLISTER [None]
  - EPISTAXIS [None]
  - ERYTHEMA [None]
  - EYE HAEMORRHAGE [None]
  - GAIT DISTURBANCE [None]
  - MOUTH HAEMORRHAGE [None]
  - NAIL BED BLEEDING [None]
  - SKIN DISCOLOURATION [None]
  - WEIGHT DECREASED [None]
